FAERS Safety Report 10644583 (Version 1)
Quarter: 2014Q4

REPORT INFORMATION
  Report Type: Spontaneous
  Country: US (occurrence: US)
  Receive Date: 20141210
  Receipt Date: 20141210
  Transmission Date: 20150529
  Serious: Yes (Hospitalization, Other)
  Sender: FDA-Public Use
  Company Number: US-TAKEDA-2014TUS013271

PATIENT
  Age: 25 Year
  Sex: Male

DRUGS (2)
  1. ENTYVIO [Suspect]
     Active Substance: VEDOLIZUMAB
     Indication: PRODUCT USED FOR UNKNOWN INDICATION
     Dosage: 300 MG, 4.8 ML STERILE H2O IN 250 ML NS, FIRST DOSE
     Route: 042
     Dates: start: 2014, end: 2014
  2. ENTYVIO [Suspect]
     Active Substance: VEDOLIZUMAB
     Dosage: 300 MG, 4.8 ML STERILE H2O IN 250 ML NS, SECOND DOSE
     Route: 042
     Dates: start: 2014, end: 2014

REACTIONS (1)
  - Haemorrhage intracranial [Recovered/Resolved]
